FAERS Safety Report 10469169 (Version 2)
Quarter: 2014Q4

REPORT INFORMATION
  Report Type: Spontaneous
  Country: FR (occurrence: None)
  Receive Date: 20140919
  Receipt Date: 20141117
  Transmission Date: 20150528
  Serious: Yes (Hospitalization, Other)
  Sender: FDA-Public Use
  Company Number: 2014RN000048

PATIENT
  Age: 84 Year
  Sex: Male

DRUGS (7)
  1. POTASSIUM CHLORIDE (POTASSIUM CHLORIDE) [Concomitant]
     Active Substance: POTASSIUM CHLORIDE
  2. TOBRAMYCIN. [Suspect]
     Active Substance: TOBRAMYCIN
     Indication: ULCERATIVE KERATITIS
     Dosage: 2 DROPS OPHTHALMIC.
     Route: 047
     Dates: start: 20140807
  3. FRUSEMIDE /00032601/ (FRUSEMIDE) [Concomitant]
  4. ACYCLOVIR. [Suspect]
     Active Substance: ACYCLOVIR
     Indication: ULCERATIVE KERATITIS
     Route: 048
     Dates: start: 20140705, end: 20140826
  5. DONEPEZIL HCL (DONEPEZIL HYDROCHLORIDE) [Concomitant]
  6. GANCICLOVIR. [Suspect]
     Active Substance: GANCICLOVIR
     Indication: ULCERATIVE KERATITIS
     Route: 047
     Dates: start: 20140807
  7. FLUINDIONE (FLUINDIONE) [Concomitant]
     Active Substance: FLUINDIONE

REACTIONS (4)
  - Leukopenia [None]
  - Anaemia [None]
  - Hyponatraemia [None]
  - Thrombocytopenia [None]

NARRATIVE: CASE EVENT DATE: 20140819
